FAERS Safety Report 13351877 (Version 1)
Quarter: 2017Q1

REPORT INFORMATION
  Report Type: Spontaneous
  Country: US (occurrence: US)
  Receive Date: 20170320
  Receipt Date: 20170320
  Transmission Date: 20170429
  Serious: No
  Sender: FDA-Public Use
  Company Number: US-SA-2016SA166425

PATIENT

DRUGS (3)
  1. ALLEGRA-D [Concomitant]
     Active Substance: FEXOFENADINE\PSEUDOEPHEDRINE
     Route: 065
  2. BENADRYL [Concomitant]
     Active Substance: DIPHENHYDRAMINE HYDROCHLORIDE
     Dosage: 25 OF BENADRYL
     Route: 065
  3. NASACORT [Suspect]
     Active Substance: TRIAMCINOLONE ACETONIDE
     Route: 065

REACTIONS (3)
  - Rhinorrhoea [Unknown]
  - Throat irritation [Unknown]
  - Eye pruritus [Unknown]
